FAERS Safety Report 6115551-1 (Version None)
Quarter: 2009Q1

REPORT INFORMATION
  Report Type: 
  Country: None (occurrence: None)
  Receive Date: 20090313
  Receipt Date: 20090302
  Transmission Date: 20090719
  Serious: Yes (Death)
  Sender: FDA-Public Use
  Company Number: ML-ROCHE-618122

PATIENT

DRUGS (2)
  1. PYRIMETHAMINE/SULFADOXINE [Suspect]
     Dosage: SINGLE DOSE ON DAY 0
     Route: 065
  2. ARTESUNATE [Suspect]
     Dosage: FROM DAY 0 TO DAY 2
     Route: 065

REACTIONS (1)
  - DEATH [None]
